FAERS Safety Report 14472036 (Version 1)
Quarter: 2018Q1

REPORT INFORMATION
  Report Type: Spontaneous
  Country: US (occurrence: US)
  Receive Date: 20180131
  Receipt Date: 20180131
  Transmission Date: 20180509
  Serious: No
  Sender: FDA-Public Use
  Company Number: US-ELI_LILLY_AND_COMPANY-US201801012284

PATIENT
  Sex: Female

DRUGS (2)
  1. CYMBALTA [Suspect]
     Active Substance: DULOXETINE HYDROCHLORIDE
     Indication: DEPRESSION
     Dosage: UNK, UNKNOWN
     Route: 065
     Dates: start: 2017, end: 2017
  2. HUMIRA [Suspect]
     Active Substance: ADALIMUMAB
     Indication: PSORIATIC ARTHROPATHY
     Dosage: UNK, UNKNOWN
     Route: 058
     Dates: start: 2017, end: 2017

REACTIONS (13)
  - Nasopharyngitis [Unknown]
  - Pain [Not Recovered/Not Resolved]
  - Cough [Unknown]
  - Stress [Not Recovered/Not Resolved]
  - Inflammatory marker increased [Recovering/Resolving]
  - Erythema [Recovered/Resolved]
  - Mobility decreased [Unknown]
  - Psoriasis [Recovered/Resolved]
  - Feeling hot [Unknown]
  - Flushing [Unknown]
  - Facial pain [Unknown]
  - Discomfort [Not Recovered/Not Resolved]
  - Renal impairment [Unknown]

NARRATIVE: CASE EVENT DATE: 2017
